FAERS Safety Report 4949045-3 (Version None)
Quarter: 2006Q1

REPORT INFORMATION
  Report Type: 
  Country: None (occurrence: None)
  Receive Date: 20060321
  Receipt Date: 20060116
  Transmission Date: 20060701
  Serious: Yes (Other)
  Sender: FDA-Public Use
  Company Number: NL-GLAXOSMITHKLINE-B0406666A

PATIENT
  Age: 19 Year
  Sex: Female
  Weight: 60 kg

DRUGS (1)
  1. LAMOTRIGINE [Suspect]
     Indication: MYOCLONIC EPILEPSY
     Dosage: 50MG TWICE PER DAY
     Dates: start: 20030101, end: 20060201

REACTIONS (6)
  - ABNORMAL BEHAVIOUR [None]
  - AGGRESSION [None]
  - AGITATION [None]
  - COGNITIVE DISORDER [None]
  - DRUG INEFFECTIVE [None]
  - PERSONALITY CHANGE [None]
